FAERS Safety Report 6231295-X (Version None)
Quarter: 2009Q2

REPORT INFORMATION
  Report Type: 
  Country: None (occurrence: None)
  Receive Date: 20090611
  Receipt Date: 20090602
  Transmission Date: 20091009
  Serious: Yes (Death)
  Sender: FDA-Public Use
  Company Number: JP-WYE-H09624009

PATIENT
  Age: 79 Year
  Sex: Male

DRUGS (3)
  1. ZOSYN [Suspect]
     Indication: PNEUMONIA
     Dosage: 4.5 G 2X PER 1 DAY INTRAVENOUS DRIP
     Route: 041
     Dates: start: 20090512, end: 20090515
  2. CIPROFLOXACIN HCL [Suspect]
     Indication: PNEUMONIA
     Dosage: 600 MG 1X PER 1 DAY INTRAVENOUS DRIP
     Route: 041
     Dates: start: 20090527, end: 20090527
  3. MEROPEN (MEROPENEM, ) [Suspect]
     Indication: PNEUMONIA
     Dosage: 1 G 1X PER 1 DAY INTRAVENOUS DRIP
     Route: 041
     Dates: start: 20090516, end: 20090525

REACTIONS (2)
  - CONDITION AGGRAVATED [None]
  - HAEMOLYTIC ANAEMIA [None]
